FAERS Safety Report 8912834 (Version 2)
Quarter: 2013Q1

REPORT INFORMATION
  Report Type: Report from Study
  Country: JP (occurrence: JP)
  Receive Date: 20121115
  Receipt Date: 20130320
  Transmission Date: 20140127
  Serious: Yes (Life-Threatening)
  Sender: FDA-Public Use
  Company Number: JP-ELI_LILLY_AND_COMPANY-JP201210001178

PATIENT
  Age: 83 Year
  Sex: Female
  Weight: 41 kg

DRUGS (20)
  1. DULOXETINE HYDROCHLORIDE [Suspect]
     Indication: DEPRESSION
     Dosage: 20 MG, UNK
     Route: 048
     Dates: start: 20110819, end: 20110830
  2. DULOXETINE HYDROCHLORIDE [Suspect]
     Dosage: 40 MG, QD
     Route: 048
     Dates: start: 20110831, end: 20110906
  3. DULOXETINE HYDROCHLORIDE [Suspect]
     Dosage: 60 MG, QD
     Route: 048
     Dates: start: 20110907, end: 20110913
  4. DULOXETINE HYDROCHLORIDE [Suspect]
     Dosage: 40 MG, QD
     Route: 048
     Dates: start: 20110914, end: 20111014
  5. DULOXETINE HYDROCHLORIDE [Suspect]
     Dosage: 20 MG, UNK
     Route: 048
     Dates: start: 20111015, end: 20111016
  6. WYPAX [Concomitant]
     Dosage: UNK, PRN
     Dates: start: 20110824, end: 20110824
  7. LEXAPRO [Concomitant]
     Dosage: 10 MG, UNK
     Dates: start: 20110914, end: 20110918
  8. RISPERDAL [Concomitant]
     Indication: RESTLESSNESS
     Dosage: UNK, PRN
     Dates: start: 20110824, end: 20111017
  9. YODEL [Concomitant]
     Indication: CONSTIPATION
     Dosage: UNK
     Dates: start: 20110926, end: 20110926
  10. LENDORMIN [Concomitant]
     Indication: DELIRIUM
     Dosage: 0.25 MG, UNK
     Dates: end: 20111017
  11. MICARDIS [Concomitant]
     Indication: HYPERTENSION
     Dosage: 40 MG, UNK
     Dates: end: 20111021
  12. AMLODINE [Concomitant]
     Indication: HYPERTENSION
     Dosage: 5 MG, UNK
     Dates: end: 20111021
  13. MAGMITT [Concomitant]
     Indication: CONSTIPATION
     Dosage: 660 MG, UNK
     Dates: end: 20111021
  14. SHINLUCK [Concomitant]
     Indication: CONSTIPATION
     Dosage: 5 MG, UNK
     Dates: end: 20111021
  15. GRAMALIL [Concomitant]
     Indication: DECREASED APPETITE
     Dosage: 25 MG, UNK
     Dates: start: 20110918, end: 20110920
  16. ABILIFY [Concomitant]
     Indication: INDIFFERENCE
     Dosage: 1.5 MG, UNK
     Dates: start: 20110921, end: 20111002
  17. ABILIFY [Concomitant]
     Dosage: 3 MG, UNK
     Dates: start: 20111003, end: 20111014
  18. ZYPREXA [Concomitant]
     Indication: DECREASED APPETITE
     Dosage: 2.5 MG, UNK
     Dates: start: 20111015, end: 20111016
  19. ZYPREXA [Concomitant]
     Dosage: 5 MG, UNK
     Dates: start: 20111017, end: 20111020
  20. MIRADOL [Concomitant]
     Indication: DECREASED APPETITE
     Dosage: 50 MG, UNK
     Dates: start: 20111007, end: 20111013

REACTIONS (5)
  - Malnutrition [Recovered/Resolved]
  - Hypochloraemia [Recovering/Resolving]
  - Anaemia [Not Recovered/Not Resolved]
  - Hypokalaemia [Recovered/Resolved]
  - Hyponatraemia [Not Recovered/Not Resolved]
